FAERS Safety Report 4757952-X (Version None)
Quarter: 2005Q3

REPORT INFORMATION
  Report Type: 
  Country: None (occurrence: None)
  Receive Date: 20050830
  Receipt Date: 20050819
  Transmission Date: 20060218
  Serious: Yes (Hospitalization)
  Sender: FDA-Public Use
  Company Number: 2005055751

PATIENT
  Sex: Male
  Weight: 90.7194 kg

DRUGS (2)
  1. DOSTINEX [Suspect]
     Indication: PITUITARY TUMOUR
     Dosage: (0.5 MG, 3 TIMES A WEEK),
     Dates: end: 20050301
  2. PARLODEL [Concomitant]

REACTIONS (4)
  - ARTERIAL OCCLUSIVE DISEASE [None]
  - RENAL IMPAIRMENT [None]
  - RENAL TRANSPLANT [None]
  - WEIGHT INCREASED [None]
